FAERS Safety Report 13579407 (Version 3)
Quarter: 2017Q2

REPORT INFORMATION
  Report Type: Spontaneous
  Country: PL (occurrence: PL)
  Receive Date: 20170525
  Receipt Date: 20170614
  Transmission Date: 20170830
  Serious: Yes (Other)
  Sender: FDA-Public Use
  Company Number: PL-009507513-1705POL012301

PATIENT
  Age: 71 Year
  Sex: Female
  Weight: 68 kg

DRUGS (2)
  1. ZEPATIER [Suspect]
     Active Substance: ELBASVIR\GRAZOPREVIR
     Indication: HEPATITIS C
     Dosage: ONCE A DAY; SINGLE DOSE AND DAILY DOSE - 50/100
     Route: 048
     Dates: start: 20170220, end: 20170515
  2. ACARD [Concomitant]
     Active Substance: ASPIRIN
     Dosage: UNK
     Dates: start: 201705

REACTIONS (1)
  - Retinal artery thrombosis [Recovered/Resolved]

NARRATIVE: CASE EVENT DATE: 2017
